FAERS Safety Report 19895226 (Version 1)
Quarter: 2021Q3

REPORT INFORMATION
  Report Type: Spontaneous
  Country: US (occurrence: US)
  Receive Date: 20210929
  Receipt Date: 20210929
  Transmission Date: 20211014
  Serious: No
  Sender: FDA-Public Use
  Company Number: None

PATIENT
  Age: 85 Year
  Sex: Male
  Weight: 93.71 kg

DRUGS (1)
  1. LISINOPRIL (LISINOPRIL 5MG TAB) [Suspect]
     Active Substance: LISINOPRIL
     Route: 048
     Dates: start: 20170814, end: 20180212

REACTIONS (4)
  - Anxiety [None]
  - Rash [None]
  - Hypersensitivity [None]
  - Enlarged uvula [None]

NARRATIVE: CASE EVENT DATE: 20180212
